FAERS Safety Report 10297960 (Version 1)
Quarter: 2014Q3

REPORT INFORMATION
  Report Type: Spontaneous
  Country: US (occurrence: US)
  Receive Date: 20140711
  Receipt Date: 20140711
  Transmission Date: 20150326
  Serious: No
  Sender: FDA-Public Use
  Company Number: US-009507513-1407USA000284

PATIENT
  Age: 15 Year
  Sex: Female
  Weight: 52.15 kg

DRUGS (1)
  1. NUVARING [Suspect]
     Active Substance: ETHINYL ESTRADIOL\ETONOGESTREL
     Indication: MUSCLE SPASMS
     Dosage: CONTINUOUS USE
     Route: 067
     Dates: start: 200806

REACTIONS (5)
  - Device breakage [Unknown]
  - Drug administration error [Unknown]
  - Incorrect drug administration duration [Unknown]
  - Device expulsion [Unknown]
  - Medical device discomfort [Unknown]

NARRATIVE: CASE EVENT DATE: 200806
